FAERS Safety Report 8538423-1 (Version None)
Quarter: 2012Q3

REPORT INFORMATION
  Report Type: 
  Country: None (occurrence: None)
  Receive Date: 20120712
  Receipt Date: 20120628
  Transmission Date: 20120928
  Serious: Yes (Life-Threatening)
  Sender: FDA-Public Use
  Company Number: 2012MA008111

PATIENT
  Age: 55 Year
  Sex: Male

DRUGS (5)
  1. ACETAMINOPHEN [Concomitant]
  2. FEVERALL [Suspect]
     Indication: PREMEDICATION
     Dosage: 1 GM;	;PO
     Route: 048
     Dates: start: 20120613, end: 20120613
  3. METOCLOPRAMIDE HYDROCHLORIDE [Concomitant]
     Indication: PREMEDICATION
     Dosage: 10 MG;	;PO
     Route: 048
     Dates: start: 20120613, end: 20120613
  4. SIMVASTATIN [Concomitant]
  5. DICLOFENAC [Concomitant]

REACTIONS (6)
  - TACHYCARDIA [None]
  - ANAPHYLACTIC REACTION [None]
  - RASH ERYTHEMATOUS [None]
  - WHEEZING [None]
  - HYPOTENSION [None]
  - ABDOMINAL PAIN [None]
